FAERS Safety Report 9742710 (Version 1)
Quarter: 2013Q4

REPORT INFORMATION
  Report Type: Spontaneous
  Country: US (occurrence: US)
  Receive Date: 20131210
  Receipt Date: 20131210
  Transmission Date: 20140711
  Serious: No
  Sender: FDA-Public Use
  Company Number: US-GILEAD-2009-0025796

PATIENT
  Age: 64 Year
  Sex: Female

DRUGS (7)
  1. LETAIRIS [Suspect]
     Indication: PULMONARY ARTERIAL HYPERTENSION
     Route: 048
     Dates: start: 20091029, end: 20091116
  2. DIGOXIN [Concomitant]
  3. LANOXIN [Concomitant]
  4. BENICAR [Concomitant]
  5. FOLIC ACID [Concomitant]
  6. ZETIA [Concomitant]
  7. REVATIO [Concomitant]

REACTIONS (1)
  - Dyspnoea [Unknown]
